FAERS Safety Report 5394722-6 (Version None)
Quarter: 2007Q3

REPORT INFORMATION
  Report Type: 
  Country: None (occurrence: None)
  Receive Date: 20070723
  Receipt Date: 20070711
  Transmission Date: 20080115
  Serious: Yes (Death, Hospitalization)
  Sender: FDA-Public Use
  Company Number: TW-PFIZER INC-2007035836

PATIENT
  Sex: Male
  Weight: 55.5 kg

DRUGS (21)
  1. SU-011,248 [Suspect]
     Indication: GASTRIC CANCER
     Route: 048
     Dates: start: 20070216, end: 20070425
  2. OMEPRAZOLE [Concomitant]
     Route: 042
     Dates: start: 20070514, end: 20070515
  3. PIPERACILLIN SODIUM W/TAZOBACTAM SODIUM [Concomitant]
     Route: 042
     Dates: start: 20070514, end: 20070515
  4. LAMIVUDINE [Concomitant]
     Route: 048
     Dates: start: 20060816, end: 20070515
  5. NEXIUM [Concomitant]
     Route: 048
     Dates: start: 20070208, end: 20070504
  6. ROHYPNOL [Concomitant]
     Route: 048
     Dates: start: 20070329, end: 20070504
  7. ZOLPIDEM TARTRATE [Concomitant]
     Route: 048
     Dates: start: 20070201, end: 20070514
  8. TRAMADOL HCL [Concomitant]
     Route: 048
     Dates: start: 20070216, end: 20070515
  9. FARLUTAL [Concomitant]
     Route: 048
     Dates: start: 20070412, end: 20070504
  10. MORPHINE [Concomitant]
     Route: 048
     Dates: start: 20070426, end: 20070504
  11. DULCOLAX [Concomitant]
     Route: 048
     Dates: start: 20070426, end: 20070504
  12. LASIX [Concomitant]
     Route: 048
     Dates: start: 20070426, end: 20070515
  13. BROWN MIXTURE [Concomitant]
     Route: 048
     Dates: start: 20070426, end: 20070504
  14. ATIVAN [Concomitant]
     Route: 048
     Dates: start: 20070504, end: 20070504
  15. ALDACTONE [Concomitant]
     Route: 048
     Dates: start: 20070506, end: 20070515
  16. CEFMETAZOLE SODIUM [Concomitant]
     Route: 042
     Dates: start: 20070506, end: 20070506
  17. ACETAMINOPHEN [Concomitant]
     Route: 048
     Dates: start: 20070507, end: 20070515
  18. CEFTAZIDIME PENTAHYDRATE [Concomitant]
     Route: 042
     Dates: start: 20070507, end: 20070514
  19. IPRATROPIUM BROMIDE [Concomitant]
     Dates: start: 20070506, end: 20070515
  20. TERBUTALINE SULFATE [Concomitant]
     Dates: start: 20070506, end: 20070509
  21. AMBROXOL HYDROCHLORIDE [Concomitant]
     Route: 048
     Dates: start: 20070507, end: 20070514

REACTIONS (7)
  - BRAIN STEM HAEMORRHAGE [None]
  - JAUNDICE [None]
  - MALAISE [None]
  - PNEUMONIA [None]
  - PYREXIA [None]
  - UPPER GASTROINTESTINAL HAEMORRHAGE [None]
  - VOMITING [None]
